FAERS Safety Report 21439671 (Version 3)
Quarter: 2023Q1

REPORT INFORMATION
  Report Type: Report from Study
  Country: FR (occurrence: FR)
  Receive Date: 20221011
  Receipt Date: 20230328
  Transmission Date: 20230418
  Serious: Yes (Hospitalization, Other)
  Sender: FDA-Public Use
  Company Number: FR-002147023-NVSC2022FR159417

PATIENT
  Age: 6 Year
  Sex: Female
  Weight: 17 kg

DRUGS (17)
  1. TEMOZOLOMIDE [Suspect]
     Active Substance: TEMOZOLOMIDE
     Indication: Neoplasm recurrence
     Dosage: 70 MILLIGRAM/SQ. METER
     Route: 042
     Dates: start: 20220504
  2. TEMOZOLOMIDE [Suspect]
     Active Substance: TEMOZOLOMIDE
     Indication: Neoplasm malignant
     Dosage: DOSE PER WEIGHT: 100
     Route: 065
     Dates: start: 20220504
  3. TEMOZOLOMIDE [Suspect]
     Active Substance: TEMOZOLOMIDE
     Indication: Neuroblastoma
  4. TEMOZOLOMIDE [Suspect]
     Active Substance: TEMOZOLOMIDE
     Indication: Recurrent cancer
  5. TOPOTECAN [Suspect]
     Active Substance: TOPOTECAN HYDROCHLORIDE
     Indication: Neoplasm malignant
     Dosage: 0.75 MG/M2(MAX 5 DAYS EVERY 21 DAYS)
     Route: 042
     Dates: start: 20220504, end: 20220616
  6. TOPOTECAN [Suspect]
     Active Substance: TOPOTECAN HYDROCHLORIDE
     Indication: Neuroblastoma recurrent
  7. VENETOCLAX [Suspect]
     Active Substance: VENETOCLAX
     Indication: Neoplasm malignant
     Dosage: 250 MG,QD(LAST DOSE WAS ON 04 MAY 2022)MAX 5 DAYS
     Route: 048
     Dates: start: 20220502, end: 20220504
  8. VENETOCLAX [Suspect]
     Active Substance: VENETOCLAX
     Indication: Neoplasm recurrence
     Dosage: 250 MG,QD(LAST DOSE WAS ON 04 MAY 2022)MAX 5 DAYS
     Route: 048
     Dates: start: 20220502, end: 20220704
  9. EMLA [Concomitant]
     Active Substance: LIDOCAINE\PRILOCAINE
     Indication: Pain prophylaxis
     Dosage: UNK, PRN (1 AS REQUIRED, PATCH)
     Route: 061
     Dates: start: 2019
  10. BACTRIM [Concomitant]
     Active Substance: SULFAMETHOXAZOLE\TRIMETHOPRIM
     Indication: Pneumocystis jirovecii pneumonia
     Dosage: 400 MILLIGRAM, Q3W
     Route: 048
     Dates: start: 201912
  11. BACTRIM [Concomitant]
     Active Substance: SULFAMETHOXAZOLE\TRIMETHOPRIM
     Indication: Prophylaxis
  12. ATARAX [Concomitant]
     Active Substance: HYDROXYZINE HYDROCHLORIDE
     Indication: Sleep disorder
     Dosage: 25 MILLIGRAM, QD
     Route: 048
     Dates: start: 20220504
  13. MELATONIN [Concomitant]
     Active Substance: MELATONIN
     Indication: Sleep disorder
     Dosage: 2 MG, QD (2 MG, 1 IN 1 D)
     Route: 048
     Dates: start: 202012
  14. SULFAMETHOXAZOLE\TRIMETHOPRIM [Concomitant]
     Active Substance: SULFAMETHOXAZOLE\TRIMETHOPRIM
     Indication: Prophylaxis
     Dosage: 400 MILLIGRAM, Q3W (400 MG, TIW)
     Route: 065
     Dates: start: 201912
  15. ALPRAZOLAM [Concomitant]
     Active Substance: ALPRAZOLAM
     Indication: Sleep disorder
     Dosage: 25 MG (25 MG, 1 IN 1 D)
     Route: 065
     Dates: start: 20220504
  16. ALPRAZOLAM [Concomitant]
     Active Substance: ALPRAZOLAM
     Indication: Anxiolytic therapy
  17. LIDOCAINE [Concomitant]
     Active Substance: LIDOCAINE
     Indication: Pain prophylaxis
     Dosage: 1 DOSAGE FORM, PRN (1 PATCH, AS REQUIRED)
     Route: 065
     Dates: start: 2019

REACTIONS (10)
  - Febrile neutropenia [Not Recovered/Not Resolved]
  - Neutropenia [Unknown]
  - Cough [Unknown]
  - Diarrhoea [Unknown]
  - Pyrexia [Unknown]
  - Anaemia [Unknown]
  - Metapneumovirus infection [Recovered/Resolved]
  - Parainfluenzae virus infection [Recovered/Resolved]
  - Orbital oedema [Unknown]
  - Product use in unapproved indication [Unknown]

NARRATIVE: CASE EVENT DATE: 20200424
